FAERS Safety Report 9450633 (Version 1)
Quarter: 2013Q3

REPORT INFORMATION
  Report Type: Spontaneous
  Country: PH (occurrence: PH)
  Receive Date: 20130809
  Receipt Date: 20130809
  Transmission Date: 20140515
  Serious: Yes (Death, Other)
  Sender: FDA-Public Use
  Company Number: PH-009507513-1308PHL002876

PATIENT
  Age: 87 Year
  Sex: Female

DRUGS (2)
  1. JANUVIA [Suspect]
     Dosage: 100 MG, QD
  2. COZAAR [Suspect]

REACTIONS (2)
  - Cardiac arrest [Fatal]
  - Diabetic complication [Fatal]
